FAERS Safety Report 5661519-9 (Version None)
Quarter: 2008Q1

REPORT INFORMATION
  Report Type: 
  Country: None (occurrence: None)
  Receive Date: 20080312
  Receipt Date: 20080226
  Transmission Date: 20080703
  Serious: Yes (Death, Hospitalization)
  Sender: FDA-Public Use
  Company Number: FR-ROCHE-550269

PATIENT

DRUGS (3)
  1. PEG-INTERFERON ALFA 2A (RO 25-8310) [Suspect]
     Indication: CHRONIC MYELOID LEUKAEMIA
     Route: 065
  2. IMATINIB [Suspect]
     Indication: CHRONIC MYELOID LEUKAEMIA
     Dosage: REPORTED AS IMATINIB 400.
     Route: 065
  3. SOLUPRED [Concomitant]

REACTIONS (2)
  - LUNG DISORDER [None]
  - PNEUMOCYSTIS JIROVECI INFECTION [None]
